FAERS Safety Report 4319837-2 (Version None)
Quarter: 2004Q1

REPORT INFORMATION
  Report Type: 
  Country: None (occurrence: None)
  Receive Date: 20040317
  Receipt Date: 20040305
  Transmission Date: 20041129
  Serious: Yes (Hospitalization)
  Sender: FDA-Public Use
  Company Number: 163-20785-04030159 (0)

PATIENT
  Age: 44 Year
  Sex: Male
  Weight: 102.9665 kg

DRUGS (1)
  1. THALOMID [Suspect]
     Indication: GLIOBLASTOMA MULTIFORME
     Dosage: 800 MG, QHS, ORAL
     Route: 048
     Dates: start: 20031230, end: 20040301

REACTIONS (6)
  - ASTHENIA [None]
  - CEREBROVASCULAR ACCIDENT [None]
  - FALL [None]
  - GLIOMA [None]
  - MALIGNANT NEOPLASM PROGRESSION [None]
  - SUBDURAL HAEMATOMA [None]
